FAERS Safety Report 6967578-5 (Version None)
Quarter: 2010Q3

REPORT INFORMATION
  Report Type: 
  Country: None (occurrence: None)
  Receive Date: 20100907
  Receipt Date: 20100901
  Transmission Date: 20110219
  Serious: Yes (Hospitalization)
  Sender: FDA-Public Use
  Company Number: JP-PFIZER INC-2010110359

PATIENT
  Sex: Male

DRUGS (1)
  1. SULPERAZON [Suspect]
     Indication: CHOLANGITIS
     Dosage: UNK
     Route: 042
     Dates: start: 20100504, end: 20100504

REACTIONS (1)
  - SHOCK [None]
